FAERS Safety Report 6854023-3 (Version None)
Quarter: 2010Q3

REPORT INFORMATION
  Report Type: 
  Country: None (occurrence: None)
  Receive Date: 20100717
  Receipt Date: 20080201
  Transmission Date: 20110219
  Serious: No
  Sender: FDA-Public Use
  Company Number: US-PFIZER INC-2007102559

PATIENT
  Sex: Female
  Weight: 68 kg

DRUGS (6)
  1. CHANTIX [Suspect]
     Indication: SMOKING CESSATION THERAPY
     Dates: start: 20071201
  2. DILTIAZEM [Concomitant]
  3. BENICAR [Concomitant]
  4. LASIX [Concomitant]
  5. XENICAL [Concomitant]
     Indication: HEPATIC STEATOSIS
  6. IMURAN [Concomitant]
     Indication: AUTOIMMUNE HEPATITIS

REACTIONS (5)
  - ABNORMAL DREAMS [None]
  - BLOOD PRESSURE INCREASED [None]
  - FATIGUE [None]
  - HEADACHE [None]
  - SOMNOLENCE [None]
